FAERS Safety Report 9725951 (Version 8)
Quarter: 2014Q2

REPORT INFORMATION
  Report Type: Spontaneous
  Country: US (occurrence: US)
  Receive Date: 20131203
  Receipt Date: 20140612
  Transmission Date: 20141212
  Serious: Yes (Other)
  Sender: FDA-Public Use
  Company Number: US-PFIZER INC-2013341149

PATIENT
  Age: 77 Year
  Sex: Male
  Weight: 68.03 kg

DRUGS (22)
  1. SUTENT [Suspect]
     Indication: RENAL CANCER
     Dosage: 25 MG, CYCLIC
     Dates: start: 20130627
  2. SUTENT [Suspect]
     Dosage: 37.5 MG, CYCLIC, 3 WEEKS ON 1 WEEK OFF.
     Dates: start: 20140417
  3. SUTENT [Suspect]
     Dosage: 50 MG, DAILY CYCLIC
  4. SUTENT [Suspect]
     Dosage: 37.5 MG, CYCLIC, 3 WEEKS ON AND 2 WEEKS OFF
  5. ZOMETA [Concomitant]
     Dosage: UNK
  6. CALCIUM GLUCONATE [Concomitant]
     Dosage: UNK
  7. METOPROLOL TARTRATE [Concomitant]
     Dosage: UNK
  8. LEVOTHYROXINE SODIUM [Concomitant]
     Dosage: UNK
  9. SPIRULINA [Concomitant]
     Dosage: UNK
  10. IMDUR [Concomitant]
     Dosage: UNK
  11. PROSCAR [Concomitant]
     Dosage: UNK
  12. PROCARDIA [Concomitant]
     Dosage: UNK
  13. FLOMAX [Concomitant]
     Dosage: UNK
  14. LISINOPRIL [Concomitant]
     Dosage: UNK
  15. PRAVASTATIN [Concomitant]
     Dosage: UNK
  16. ASPIRIN [Concomitant]
     Dosage: 81 MG, UNK
  17. HYDROCODONE W/ACETAMINOPHEN [Concomitant]
     Dosage: UNK
  18. FISH OIL [Concomitant]
     Dosage: UNK
  19. CALCIUM [Concomitant]
     Dosage: UNK
  20. SINEMET [Concomitant]
     Dosage: UNK
  21. METAMUCIL [Concomitant]
     Dosage: UNK
  22. ONE-A-DAY [Concomitant]
     Dosage: UNK

REACTIONS (22)
  - Gait disturbance [Unknown]
  - Retching [Unknown]
  - Nausea [Not Recovered/Not Resolved]
  - Pain [Recovering/Resolving]
  - Diarrhoea [Recovered/Resolved]
  - Dysgeusia [Not Recovered/Not Resolved]
  - Decreased appetite [Not Recovered/Not Resolved]
  - Oral pain [Not Recovered/Not Resolved]
  - Gingival pain [Not Recovered/Not Resolved]
  - Mastication disorder [Unknown]
  - Weight decreased [Unknown]
  - Fatigue [Not Recovered/Not Resolved]
  - Dry mouth [Unknown]
  - Epistaxis [Unknown]
  - Blood urine present [Unknown]
  - Thyroid function test abnormal [Unknown]
  - Pain in extremity [Unknown]
  - Bone pain [Not Recovered/Not Resolved]
  - Abdominal pain lower [Not Recovered/Not Resolved]
  - Flatulence [Recovering/Resolving]
  - Dyspepsia [Recovering/Resolving]
  - Gastritis [Unknown]
